FAERS Safety Report 7164802-3 (Version None)
Quarter: 2010Q4

REPORT INFORMATION
  Report Type: 
  Country: None (occurrence: None)
  Receive Date: 20101215
  Receipt Date: 20101209
  Transmission Date: 20110411
  Serious: Yes (Hospitalization)
  Sender: FDA-Public Use
  Company Number: CH-GILEAD-2010-0034296

PATIENT
  Age: 69 Year
  Sex: Male
  Weight: 50 kg

DRUGS (7)
  1. HEPSERA [Suspect]
     Indication: HEPATITIS B
     Route: 048
     Dates: start: 20080701, end: 20101001
  2. FENTANYL [Concomitant]
  3. DAFALGAN [Concomitant]
  4. PANTOZOL [Concomitant]
  5. CALCIUM D3 [Concomitant]
  6. FOSAVANCE [Concomitant]
  7. INDERAL [Concomitant]

REACTIONS (5)
  - AMYOTROPHY [None]
  - BONE PAIN [None]
  - CACHEXIA [None]
  - FRACTURE [None]
  - OSTEOMALACIA [None]
